FAERS Safety Report 24859252 (Version 1)
Quarter: 2025Q1

REPORT INFORMATION
  Report Type: Report from Study
  Country: CA (occurrence: CA)
  Receive Date: 20250118
  Receipt Date: 20250118
  Transmission Date: 20250408
  Serious: Yes (Hospitalization, Other)
  Sender: TAKEDA
  Company Number: CA-TAKEDA-2025TUS004237

PATIENT
  Age: 68 Year
  Sex: Female

DRUGS (10)
  1. VEDOLIZUMAB [Suspect]
     Active Substance: VEDOLIZUMAB
     Indication: Crohn^s disease
  2. VEDOLIZUMAB [Suspect]
     Active Substance: VEDOLIZUMAB
     Dosage: 300 MILLIGRAM, Q4WEEKS
     Dates: start: 20210924
  3. RAMIPRIL [Concomitant]
     Active Substance: RAMIPRIL
  4. ELIQUIS [Concomitant]
     Active Substance: APIXABAN
  5. ENTOCORT [Concomitant]
     Active Substance: BUDESONIDE
  6. QUETIAPINE [Concomitant]
     Active Substance: QUETIAPINE
  7. ONDANSETRON [Concomitant]
     Active Substance: ONDANSETRON
  8. HYDROCHLOROTHIAZIDE [Concomitant]
     Active Substance: HYDROCHLOROTHIAZIDE
  9. HYDROMORPHONE [Concomitant]
     Active Substance: HYDROMORPHONE
  10. ADMELOG [Concomitant]
     Active Substance: INSULIN LISPRO

REACTIONS (4)
  - Pneumonia [Recovering/Resolving]
  - Asthenia [Recovering/Resolving]
  - Fluid retention [Recovering/Resolving]
  - Off label use [Unknown]

NARRATIVE: CASE EVENT DATE: 20210924
